FAERS Safety Report 9432330 (Version 1)
Quarter: 2013Q3

REPORT INFORMATION
  Report Type: Spontaneous
  Country: US (occurrence: None)
  Receive Date: 20130730
  Receipt Date: 20130730
  Transmission Date: 20140515
  Serious: No
  Sender: FDA-Public Use
  Company Number: None

PATIENT
  Age: 64 Year
  Sex: Female
  Weight: 58.97 kg

DRUGS (1)
  1. WELLBUTRIN [Suspect]
     Dates: start: 2002, end: 2013

REACTIONS (6)
  - Drug ineffective [None]
  - Feeling abnormal [None]
  - Depression [None]
  - Decreased activity [None]
  - Fall [None]
  - Balance disorder [None]
